FAERS Safety Report 14281819 (Version 1)
Quarter: 2017Q4

REPORT INFORMATION
  Report Type: Spontaneous
  Country: CH (occurrence: CH)
  Receive Date: 20171213
  Receipt Date: 20171213
  Transmission Date: 20180321
  Serious: Yes (Other)
  Sender: FDA-Public Use
  Company Number: CH-NOVOPROD-575558

PATIENT
  Sex: Female
  Weight: 3.3 kg

DRUGS (5)
  1. COAPROVEL [Suspect]
     Active Substance: HYDROCHLOROTHIAZIDE\IRBESARTAN
     Indication: HYPERTENSION
     Dosage: SINCE 2016, DOSE AND EXACT START OF TREATMENT UNKNOWN
     Route: 064
     Dates: start: 20161223, end: 20170417
  2. TRESIBA [Suspect]
     Active Substance: INSULIN DEGLUDEC
     Indication: DIABETES MELLITUS
     Dosage: 24 U, QD (14-0-23 (BID) AT ANY RATE UNTIL BIRTH)
     Route: 064
     Dates: start: 20161223
  3. HUMALOG [Suspect]
     Active Substance: INSULIN LISPRO
     Indication: DIABETES MELLITUS
     Dosage: 14-15U TID (THEN 18U TID TAKEN AT ANY RATE UNTIL BIRTH)
     Route: 064
     Dates: start: 20161223
  4. TRANDATE [Suspect]
     Active Substance: LABETALOL HYDROCHLORIDE
     Indication: HYPERTENSION
     Dosage: TREATMENT TAKEN AT ANY RATE UNTIL BIRTH
     Route: 064
     Dates: start: 20170417
  5. METFORMINE /00082701/ [Suspect]
     Active Substance: METFORMIN HYDROCHLORIDE
     Indication: DIABETES MELLITUS
     Dosage: UNK
     Route: 064
     Dates: start: 20161223, end: 20170417

REACTIONS (5)
  - Maternal drugs affecting foetus [None]
  - Hypoglycaemia neonatal [Recovered/Resolved]
  - Caesarean section [None]
  - Foetal exposure during pregnancy [Recovered/Resolved]
  - Exposure during pregnancy [Recovered/Resolved]

NARRATIVE: CASE EVENT DATE: 20170106
